FAERS Safety Report 9286399 (Version 1)
Quarter: 2013Q2

REPORT INFORMATION
  Report Type: Spontaneous
  Country: DE (occurrence: None)
  Receive Date: 20130508
  Receipt Date: 20130508
  Transmission Date: 20140414
  Serious: Yes (Hospitalization)
  Sender: FDA-Public Use
  Company Number: SYM-2013-03330

PATIENT
  Age: 69 Year
  Sex: Female

DRUGS (3)
  1. ELONTRIL [Suspect]
     Indication: PRODUCT USED FOR UNKNOWN INDICATION
     Route: 048
     Dates: start: 20130403, end: 20130403
  2. CYMBALTA [Suspect]
     Indication: PRODUCT USED FOR UNKNOWN INDICATION
     Route: 048
     Dates: start: 20130403, end: 20130403
  3. ALCOHOLIC [Suspect]
     Indication: PRODUCT USED FOR UNKNOWN INDICATION
     Route: 048
     Dates: start: 20130403, end: 20130403

REACTIONS (5)
  - Somnolence [None]
  - Drug abuse [None]
  - Hypotension [None]
  - Blood glucose increased [None]
  - Alcohol abuse [None]
